FAERS Safety Report 9803381 (Version 1)
Quarter: 2014Q1

REPORT INFORMATION
  Report Type: Spontaneous
  Country: GB (occurrence: GB)
  Receive Date: 20140108
  Receipt Date: 20140108
  Transmission Date: 20141002
  Serious: Yes (Other)
  Sender: FDA-Public Use
  Company Number: GB-TEVA-454511ISR

PATIENT
  Age: 71 Year
  Sex: Female

DRUGS (3)
  1. SIMVASTATIN [Suspect]
     Dosage: 40 MILLIGRAM DAILY;
  2. ATORVASTATIN [Suspect]
     Dosage: 20 MILLIGRAM DAILY;
  3. MULTIPLE MEDICATIONS [Concomitant]
     Dosage: THESE MEDICATIONS ARE NOT SUSPECTED TO HAVE CAUSED THESE SIDE EFFECTS.

REACTIONS (8)
  - Gastrooesophageal reflux disease [Not Recovered/Not Resolved]
  - Fatigue [Not Recovered/Not Resolved]
  - Confusional state [Recovering/Resolving]
  - Memory impairment [Recovering/Resolving]
  - Insomnia [Not Recovered/Not Resolved]
  - Gingival erosion [Not Recovered/Not Resolved]
  - Pain [Not Recovered/Not Resolved]
  - Mobility decreased [Recovering/Resolving]
